FAERS Safety Report 12691388 (Version 2)
Quarter: 2016Q3

REPORT INFORMATION
  Report Type: Spontaneous
  Country: US (occurrence: US)
  Receive Date: 20160826
  Receipt Date: 20160916
  Transmission Date: 20161109
  Serious: Yes (Other)
  Sender: FDA-Public Use
  Company Number: US-ELI_LILLY_AND_COMPANY-US201608011470

PATIENT
  Sex: Female
  Weight: 91.61 kg

DRUGS (9)
  1. BENICAR HCT [Concomitant]
     Active Substance: HYDROCHLOROTHIAZIDE\OLMESARTAN MEDOXOMIL
  2. INSULIN [Concomitant]
     Active Substance: INSULIN NOS
  3. LORAZEPAN [Concomitant]
     Active Substance: LORAZEPAM
  4. LANSOPRAZOLE. [Concomitant]
     Active Substance: LANSOPRAZOLE
  5. GABAPENTIN. [Concomitant]
     Active Substance: GABAPENTIN
     Dosage: 60 MG, QD
  6. GLIPIZIDE. [Concomitant]
     Active Substance: GLIPIZIDE
     Dosage: UNK UNK, BID
  7. ASA [Concomitant]
     Active Substance: ASPIRIN
     Dosage: UNK UNK, QD
  8. ZETIA [Concomitant]
     Active Substance: EZETIMIBE
     Dosage: UNK UNK, QD
  9. EFFIENT [Suspect]
     Active Substance: PRASUGREL HYDROCHLORIDE
     Indication: ATRIAL SEPTAL DEFECT
     Dosage: 10 MG, QD
     Route: 065
     Dates: start: 20160818, end: 20160824

REACTIONS (7)
  - Dizziness [Unknown]
  - Off label use [Unknown]
  - Contusion [Unknown]
  - Drug dose omission [Unknown]
  - Dyspnoea [Unknown]
  - Insomnia [Unknown]
  - Irritability [Unknown]
